FAERS Safety Report 6529975-1 (Version None)
Quarter: 2009Q4

REPORT INFORMATION
  Report Type: 
  Country: None (occurrence: None)
  Receive Date: 20091231
  Receipt Date: 20091103
  Transmission Date: 20100525
  Serious: Yes (Hospitalization, Other)
  Sender: FDA-Public Use
  Company Number: 003528

PATIENT
  Sex: Female
  Weight: 29 kg

DRUGS (2)
  1. XUSAL (XUSAL) [Suspect]
     Indication: URTICARIA CHRONIC
     Dosage: (10 MG TID ORAL)
     Route: 048
     Dates: start: 20090401
  2. INSULIN HUMAN [Concomitant]

REACTIONS (4)
  - EPILEPSY [None]
  - HYPOGLYCAEMIA [None]
  - LISTLESS [None]
  - LOSS OF CONSCIOUSNESS [None]
